FAERS Safety Report 10631833 (Version 1)
Quarter: 2014Q4

REPORT INFORMATION
  Report Type: Spontaneous
  Country: US (occurrence: US)
  Receive Date: 20141205
  Receipt Date: 20141205
  Transmission Date: 20150529
  Serious: No
  Sender: FDA-Public Use
  Company Number: US-BRISTOL-MYERS SQUIBB COMPANY-21498803

PATIENT
  Age: 72 Year
  Sex: Male
  Weight: 150.11 kg

DRUGS (10)
  1. LISINOPRIL. [Concomitant]
     Active Substance: LISINOPRIL
  2. JANUVIA [Concomitant]
     Active Substance: SITAGLIPTIN PHOSPHATE
  3. FARXIGA [Suspect]
     Active Substance: DAPAGLIFLOZIN PROPANEDIOL
     Indication: TYPE 2 DIABETES MELLITUS
     Route: 048
     Dates: start: 20140908
  4. PROAIR HFA [Concomitant]
     Active Substance: ALBUTEROL SULFATE
  5. GLYBURIDE. [Concomitant]
     Active Substance: GLYBURIDE
  6. FLONASE [Concomitant]
     Active Substance: FLUTICASONE PROPIONATE
  7. ZOCOR [Concomitant]
     Active Substance: SIMVASTATIN
  8. FENOFIBRATE. [Concomitant]
     Active Substance: FENOFIBRATE
  9. TRAMADOL [Concomitant]
     Active Substance: TRAMADOL
     Indication: PAIN
  10. HYDROCHLOROTHIAZIDE. [Concomitant]
     Active Substance: HYDROCHLOROTHIAZIDE

REACTIONS (1)
  - Scrotal oedema [Recovered/Resolved]

NARRATIVE: CASE EVENT DATE: 20140927
